FAERS Safety Report 12202497 (Version 1)
Quarter: 2016Q1

REPORT INFORMATION
  Report Type: Spontaneous
  Country: US (occurrence: US)
  Receive Date: 20160322
  Receipt Date: 20160322
  Transmission Date: 20160526
  Serious: Yes (Other)
  Sender: FDA-Public Use
  Company Number: US-BAUSCH-BL-2016-006379

PATIENT
  Age: 71 Year
  Sex: Male
  Weight: 72.64 kg

DRUGS (1)
  1. MOVIPREP [Suspect]
     Active Substance: ASCORBIC ACID\POLYETHYLENE GLYCOL 3350\POTASSIUM CHLORIDE\SODIUM ASCORBATE\SODIUM CHLORIDE\SODIUM SULFATE
     Indication: COLONOSCOPY
     Dosage: DAY BEFORE PROCEDURE:  5PM, DRINK 8 OUNCES EVERY 15 MINUTES UNTIL A FULL LITER COMPLETED; 1AM, DRINK
     Route: 048
     Dates: start: 20160310, end: 20160311

REACTIONS (6)
  - Nausea [Recovered/Resolved]
  - Chills [Recovered/Resolved]
  - Headache [Recovered/Resolved]
  - Regurgitation [Recovered/Resolved]
  - Dyspepsia [Recovered/Resolved]
  - Cardiac discomfort [Recovered/Resolved]

NARRATIVE: CASE EVENT DATE: 20160311
